FAERS Safety Report 10948570 (Version 2)
Quarter: 2015Q2

REPORT INFORMATION
  Report Type: Report from Study
  Country: SI (occurrence: SI)
  Receive Date: 20150324
  Receipt Date: 20150414
  Transmission Date: 20150821
  Serious: Yes (Hospitalization)
  Sender: FDA-Public Use
  Company Number: SI-JNJFOC-20150310189

PATIENT
  Age: 82 Year
  Sex: Male
  Weight: 85 kg

DRUGS (8)
  1. ASPIRIN. [Concomitant]
     Active Substance: ASPIRIN
     Route: 065
  2. CONTROLOC [Concomitant]
     Active Substance: PANTOPRAZOLE SODIUM
     Route: 065
  3. EXELON PATCH [Concomitant]
     Active Substance: RIVASTIGMINE
     Route: 065
  4. SORTIS (ATORVASTATIN) [Concomitant]
     Active Substance: ATORVASTATIN
     Route: 065
  5. XALATAN [Concomitant]
     Active Substance: LATANOPROST
     Route: 065
  6. KVENTIAX [Concomitant]
     Route: 065
  7. NOVONORM [Concomitant]
     Active Substance: REPAGLINIDE
     Route: 065
  8. USTEKINUMAB [Suspect]
     Active Substance: USTEKINUMAB
     Indication: PSORIASIS
     Route: 058
     Dates: start: 201111

REACTIONS (1)
  - Syncope [Recovered/Resolved]

NARRATIVE: CASE EVENT DATE: 20150224
